FAERS Safety Report 8114475-8 (Version None)
Quarter: 2012Q1

REPORT INFORMATION
  Report Type: 
  Country: None (occurrence: None)
  Receive Date: 20120206
  Receipt Date: 20120127
  Transmission Date: 20120608
  Serious: No
  Sender: FDA-Public Use
  Company Number: US-BIOGENIDEC-2012BI003480

PATIENT
  Age: 66 Year
  Sex: Female

DRUGS (3)
  1. IBUPROFEN [Concomitant]
     Indication: INSOMNIA
  2. ACETAMINOPHEN [Concomitant]
     Indication: INSOMNIA
  3. AVONEX [Suspect]
     Indication: MULTIPLE SCLEROSIS
     Route: 030
     Dates: start: 20120123

REACTIONS (4)
  - PAIN IN EXTREMITY [None]
  - INSOMNIA [None]
  - FLUSHING [None]
  - INJECTION SITE PAIN [None]
